FAERS Safety Report 5039855-9 (Version None)
Quarter: 2006Q2

REPORT INFORMATION
  Report Type: 
  Country: None (occurrence: None)
  Receive Date: 20060601
  Receipt Date: 20060110
  Transmission Date: 20061013
  Serious: No
  Sender: FDA-Public Use
  Company Number: 2006PV006876

PATIENT
  Age: 27 Year
  Sex: Female
  Weight: 136.0791 kg

DRUGS (8)
  1. BYETTA [Suspect]
     Indication: DRUG USE FOR UNKNOWN INDICATION
     Dosage: SEE IMAGE
     Route: 058
     Dates: start: 20051111, end: 20051201
  2. BYETTA [Suspect]
     Indication: DRUG USE FOR UNKNOWN INDICATION
     Dosage: SEE IMAGE
     Route: 058
     Dates: start: 20051202
  3. EFFEXOR XR [Concomitant]
  4. WELLBUTRIN [Concomitant]
  5. ABILIFY [Concomitant]
  6. ZYRTEC [Concomitant]
  7. PREVACID [Concomitant]
  8. SEASONALE [Concomitant]

REACTIONS (1)
  - DRUG SCREEN FALSE POSITIVE [None]
